FAERS Safety Report 17391344 (Version 2)
Quarter: 2020Q2

REPORT INFORMATION
  Report Type: Spontaneous
  Country: US (occurrence: US)
  Receive Date: 20200207
  Receipt Date: 20200609
  Transmission Date: 20200713
  Serious: Yes (Life-Threatening, Hospitalization)
  Sender: FDA-Public Use
  Company Number: US-SUN PHARMACEUTICAL INDUSTRIES LTD-2020R1-235804

PATIENT
  Age: 61 Year
  Sex: Male

DRUGS (1)
  1. BACLOFEN. [Suspect]
     Active Substance: BACLOFEN
     Indication: PRODUCT USED FOR UNKNOWN INDICATION
     Dosage: 10 DOSAGE FORM, QD
     Route: 065

REACTIONS (6)
  - Delirium [Recovering/Resolving]
  - Drug withdrawal syndrome [Unknown]
  - Insomnia [Unknown]
  - Confusional state [Unknown]
  - Hallucinations, mixed [Recovering/Resolving]
  - Agitation [Recovering/Resolving]
